FAERS Safety Report 10207706 (Version 1)
Quarter: 2014Q2

REPORT INFORMATION
  Report Type: Spontaneous
  Country: US (occurrence: US)
  Receive Date: 20140530
  Receipt Date: 20140530
  Transmission Date: 20141212
  Serious: No
  Sender: FDA-Public Use
  Company Number: US-GLAXOSMITHKLINE-A1055776A

PATIENT
  Sex: 0

DRUGS (1)
  1. VENTOLIN [Suspect]
     Route: 055

REACTIONS (2)
  - Drug administration error [Unknown]
  - Off label use [Unknown]
